FAERS Safety Report 6504792-7 (Version None)
Quarter: 2009Q4

REPORT INFORMATION
  Report Type: 
  Country: None (occurrence: None)
  Receive Date: 20091216
  Receipt Date: 20091202
  Transmission Date: 20100525
  Serious: Yes (Hospitalization)
  Sender: FDA-Public Use
  Company Number: 2008AL007657

PATIENT
  Age: 24 Year
  Sex: Female

DRUGS (3)
  1. DIAZEPAM TAB [Suspect]
     Dosage: 130 MG; X1
  2. CLOZARIL [Concomitant]
  3. OLANZAPINE [Concomitant]

REACTIONS (3)
  - DRUG DOSE OMISSION [None]
  - MULTIPLE DRUG OVERDOSE [None]
  - SOMNOLENCE [None]
